FAERS Safety Report 19012367 (Version 2)
Quarter: 2023Q1

REPORT INFORMATION
  Report Type: Report from Study
  Country: DE (occurrence: DE)
  Receive Date: 20210315
  Receipt Date: 20230119
  Transmission Date: 20230417
  Serious: Yes (Hospitalization, Other)
  Sender: FDA-Public Use
  Company Number: DE-ACTELION-A-CH2019-191636

PATIENT
  Age: 70 Year
  Sex: Female
  Weight: 89 kg

DRUGS (27)
  1. OPSUMIT [Suspect]
     Active Substance: MACITENTAN
     Indication: Pulmonary arterial hypertension
     Dosage: 10 MG, QD
     Route: 048
     Dates: start: 20160730
  2. UPTRAVI [Suspect]
     Active Substance: SELEXIPAG
     Indication: Pulmonary arterial hypertension
     Dosage: 3200 MCG, QD
     Route: 048
     Dates: start: 20181231
  3. UPTRAVI [Suspect]
     Active Substance: SELEXIPAG
     Dosage: 400 MCG, QD
     Route: 048
     Dates: start: 20180912, end: 20181014
  4. UPTRAVI [Suspect]
     Active Substance: SELEXIPAG
     Dosage: 800 MCG, QD
     Route: 048
     Dates: start: 20181015, end: 20181021
  5. UPTRAVI [Suspect]
     Active Substance: SELEXIPAG
     Dosage: 1000 MCG, QD
     Route: 048
     Dates: start: 20181022, end: 20181028
  6. UPTRAVI [Suspect]
     Active Substance: SELEXIPAG
     Dosage: 1400 MCG
     Route: 048
     Dates: start: 20181029, end: 20181104
  7. UPTRAVI [Suspect]
     Active Substance: SELEXIPAG
     Dosage: 1600 MCG, QD
     Route: 048
     Dates: start: 20181105, end: 20181111
  8. UPTRAVI [Suspect]
     Active Substance: SELEXIPAG
     Dosage: 1800 MCG, QD
     Route: 048
     Dates: start: 20181112, end: 20181118
  9. UPTRAVI [Suspect]
     Active Substance: SELEXIPAG
     Dosage: 2000 MCG, QD
     Route: 048
     Dates: start: 20181119, end: 20181125
  10. UPTRAVI [Suspect]
     Active Substance: SELEXIPAG
     Dosage: 2200 MCG, QD
     Route: 048
     Dates: start: 20181126, end: 20181202
  11. UPTRAVI [Suspect]
     Active Substance: SELEXIPAG
     Dosage: 2400 MCG, QD
     Route: 048
     Dates: start: 20181203, end: 20181209
  12. UPTRAVI [Suspect]
     Active Substance: SELEXIPAG
     Dosage: 2600 MCG, QD
     Route: 048
     Dates: start: 20181210, end: 20181216
  13. UPTRAVI [Suspect]
     Active Substance: SELEXIPAG
     Dosage: 2800 MCG, QD
     Route: 048
     Dates: start: 20181217, end: 20181223
  14. UPTRAVI [Suspect]
     Active Substance: SELEXIPAG
     Dosage: 3000 MCG, QD
     Route: 048
     Dates: start: 20181224, end: 20181230
  15. ADCIRCA [Concomitant]
     Active Substance: TADALAFIL
     Indication: Pulmonary arterial hypertension
     Dosage: 40 MG, QD
     Dates: start: 20160826
  16. LEVOTHYROXINE SODIUM [Concomitant]
     Active Substance: LEVOTHYROXINE SODIUM
     Indication: Autoimmune thyroiditis
     Dosage: UNK
     Route: 048
     Dates: start: 1985
  17. FUROSEMIDE [Concomitant]
     Active Substance: FUROSEMIDE
     Indication: Diuretic therapy
     Dosage: UNK
     Route: 048
     Dates: start: 20060502
  18. SPIRONOLACTONE [Concomitant]
     Active Substance: SPIRONOLACTONE
     Indication: Diuretic therapy
     Dosage: UNK
     Route: 048
     Dates: start: 20140923
  19. MARCUMAR [Concomitant]
     Active Substance: PHENPROCOUMON
     Indication: Thrombosis
     Dosage: UNK
     Route: 048
     Dates: start: 20070503
  20. SAB SIMPLEX [DIMETICONE] [Concomitant]
     Indication: Abdominal distension
     Dosage: UNK
     Route: 048
     Dates: start: 20160729
  21. MOVICOL [Concomitant]
     Active Substance: POLYETHYLENE GLYCOL 3350\POTASSIUM CHLORIDE\SODIUM BICARBONATE\SODIUM CHLORIDE
     Indication: Laxative supportive care
     Dosage: UNK
     Route: 048
     Dates: start: 20160729
  22. FOLIC ACID [Concomitant]
     Active Substance: FOLIC ACID
     Indication: Vitamin supplementation
     Dosage: UNK
     Route: 048
     Dates: start: 20151030
  23. METHOTREXATE [Concomitant]
     Active Substance: METHOTREXATE
     Indication: Mixed connective tissue disease
     Dosage: UNK
     Route: 048
     Dates: start: 200606
  24. COMIRNATY [Concomitant]
     Active Substance: TOZINAMERAN
     Indication: COVID-19
     Route: 030
     Dates: start: 20211111
  25. COMIRNATY [Concomitant]
     Active Substance: TOZINAMERAN
     Route: 030
     Dates: end: 20220223
  26. COMIRNATY [Concomitant]
     Active Substance: TOZINAMERAN
     Route: 030
     Dates: end: 20221102
  27. OXYGEN [Concomitant]
     Active Substance: OXYGEN
     Indication: Oxygen saturation decreased
     Route: 055
     Dates: start: 20190404

REACTIONS (11)
  - Hyperthyroidism [Unknown]
  - Skin laceration [Recovered/Resolved]
  - Fall [Recovered/Resolved]
  - Renal failure [Unknown]
  - Blood creatinine increased [Unknown]
  - Glomerular filtration rate decreased [Unknown]
  - Blood urea increased [Unknown]
  - Blood uric acid increased [Unknown]
  - Hypertension [Unknown]
  - N-terminal prohormone brain natriuretic peptide increased [Unknown]
  - Blood thyroid stimulating hormone increased [Unknown]

NARRATIVE: CASE EVENT DATE: 20180912
